FAERS Safety Report 18105230 (Version 2)
Quarter: 2020Q3

REPORT INFORMATION
  Report Type: Report from Study
  Country: JP (occurrence: JP)
  Receive Date: 20200804
  Receipt Date: 20200806
  Transmission Date: 20201103
  Serious: Yes (Other)
  Sender: FDA-Public Use
  Company Number: JP-UCBSA-2019017873

PATIENT
  Age: 19 Year
  Sex: Male
  Weight: 25.5 kg

DRUGS (21)
  1. LACOSAMIDE. [Suspect]
     Active Substance: LACOSAMIDE
     Dosage: 75 MILLIGRAM, 2X/DAY (BID)
     Route: 048
     Dates: start: 20181211, end: 20190429
  2. LAMOTRIGINE. [Suspect]
     Active Substance: LAMOTRIGINE
     Dosage: 300 MG DAILY
     Route: 048
     Dates: start: 20190402, end: 20190513
  3. LACOSAMIDE. [Suspect]
     Active Substance: LACOSAMIDE
     Indication: PARTIAL SEIZURES WITH SECONDARY GENERALISATION
     Dosage: 50 MILLIGRAM, ONCE DAILY (QD)
     Route: 048
     Dates: start: 20181113, end: 20181126
  4. CARBAMAZEPINE. [Suspect]
     Active Substance: CARBAMAZEPINE
     Indication: PARTIAL SEIZURES WITH SECONDARY GENERALISATION
     Dosage: 300 MG DAILY
     Route: 048
     Dates: end: 20181126
  5. LAMOTRIGINE. [Suspect]
     Active Substance: LAMOTRIGINE
     Dosage: 150 MG DAILY
     Route: 048
     Dates: start: 20190709, end: 20190722
  6. CARBAMAZEPINE. [Suspect]
     Active Substance: CARBAMAZEPINE
     Dosage: 200 MG DAILY
     Route: 048
     Dates: start: 20181127, end: 20181210
  7. LEVOFLOXACIN HEMIHYDRATE [Concomitant]
     Active Substance: LEVOFLOXACIN
     Indication: PRODUCT USED FOR UNKNOWN INDICATION
     Route: 048
     Dates: start: 20190504, end: 20190512
  8. LACOSAMIDE. [Suspect]
     Active Substance: LACOSAMIDE
     Dosage: 120 MILLIGRAM, 2X/DAY (BID)
     Route: 048
     Dates: start: 20191029
  9. CARBAMAZEPINE. [Suspect]
     Active Substance: CARBAMAZEPINE
     Dosage: 100 MG DAILY
     Route: 048
     Dates: start: 20181211, end: 20181224
  10. SODIUM CHLORIDE. [Suspect]
     Active Substance: SODIUM CHLORIDE
     Indication: PRODUCT USED FOR UNKNOWN INDICATION
     Dosage: 2 GM DAILY
     Route: 048
  11. FYCOMPA [Concomitant]
     Active Substance: PERAMPANEL
     Indication: PARTIAL SEIZURES WITH SECONDARY GENERALISATION
     Route: 048
     Dates: start: 20190611, end: 20190624
  12. FYCOMPA [Concomitant]
     Active Substance: PERAMPANEL
     Route: 048
     Dates: start: 20190709, end: 20190902
  13. LACOSAMIDE. [Suspect]
     Active Substance: LACOSAMIDE
     Dosage: 100 MILLIGRAM, 2X/DAY (BID)
     Route: 048
     Dates: start: 20190430, end: 20191028
  14. LAMOTRIGINE. [Suspect]
     Active Substance: LAMOTRIGINE
     Dosage: 200 MG DAILY
     Route: 048
     Dates: start: 20190514, end: 20190708
  15. CALFINA [ALFACALCIDOL] [Suspect]
     Active Substance: ALFACALCIDOL
     Indication: PRODUCT USED FOR UNKNOWN INDICATION
     Dosage: 0.5 MICROGRAM DAILY
     Route: 048
  16. FYCOMPA [Concomitant]
     Active Substance: PERAMPANEL
     Route: 048
     Dates: start: 20190625, end: 20190708
  17. LACOSAMIDE. [Suspect]
     Active Substance: LACOSAMIDE
     Dosage: 50 MILLIGRAM, 2X/DAY (BID)
     Route: 048
     Dates: start: 20181127, end: 20181210
  18. LAMOTRIGINE. [Suspect]
     Active Substance: LAMOTRIGINE
     Indication: PARTIAL SEIZURES WITH SECONDARY GENERALISATION
     Dosage: 350 MG DAILY
     Route: 048
     Dates: end: 20190401
  19. LAMOTRIGINE. [Suspect]
     Active Substance: LAMOTRIGINE
     Dosage: 100 MG DAILY
     Route: 048
     Dates: start: 20190723, end: 20191028
  20. SODIUM PICOSULFATE [Suspect]
     Active Substance: SODIUM PICOSULFATE
     Indication: PRODUCT USED FOR UNKNOWN INDICATION
     Dosage: UNK
     Route: 048
  21. FYCOMPA [Concomitant]
     Active Substance: PERAMPANEL
     Route: 048
     Dates: start: 20190903

REACTIONS (5)
  - Off label use [Unknown]
  - Groin abscess [Recovered/Resolved]
  - Bronchitis [Unknown]
  - Pyelonephritis acute [Recovered/Resolved]
  - Liver disorder [Not Recovered/Not Resolved]

NARRATIVE: CASE EVENT DATE: 20181113
